FAERS Safety Report 21999788 (Version 3)
Quarter: 2023Q1

REPORT INFORMATION
  Report Type: Report from Study
  Country: US (occurrence: US)
  Receive Date: 20230216
  Receipt Date: 20230329
  Transmission Date: 20230417
  Serious: Yes (Hospitalization, Other)
  Sender: FDA-Public Use
  Company Number: US-TAKEDA-2023TUS016785

PATIENT
  Age: 1 Year
  Sex: Male
  Weight: 9.97 kg

DRUGS (19)
  1. TEDUGLUTIDE [Suspect]
     Active Substance: TEDUGLUTIDE
     Indication: Short-bowel syndrome
     Dosage: 0.5 MILLIGRAM, QD
     Route: 058
  2. TEDUGLUTIDE [Suspect]
     Active Substance: TEDUGLUTIDE
     Indication: Short-bowel syndrome
     Dosage: 0.5 MILLIGRAM, QD
     Route: 058
  3. TEDUGLUTIDE [Suspect]
     Active Substance: TEDUGLUTIDE
     Indication: Short-bowel syndrome
     Dosage: 0.5 MILLIGRAM, QD
     Route: 058
  4. TEDUGLUTIDE [Suspect]
     Active Substance: TEDUGLUTIDE
     Indication: Short-bowel syndrome
     Dosage: 0.5 MILLIGRAM, QD
     Route: 058
  5. PENICILLIN G POTASSIUM [Concomitant]
     Active Substance: PENICILLIN G POTASSIUM
     Dosage: UNK
  6. IBUPROFEN [Concomitant]
     Active Substance: IBUPROFEN
     Dosage: UNK
     Route: 048
  7. ERYTHROMYCIN ETHYLSUCCINATE [Concomitant]
     Active Substance: ERYTHROMYCIN ETHYLSUCCINATE
     Dosage: UNK
  8. ONDANSETRON HCL [Concomitant]
     Active Substance: ONDANSETRON HYDROCHLORIDE
     Dosage: UNK
  9. PETROLEUM JELLY [Concomitant]
     Active Substance: PETROLATUM
     Dosage: UNK
  10. ZINC OXIDE [Concomitant]
     Active Substance: ZINC OXIDE
     Dosage: 13 PERCENT
     Route: 065
  11. MENTHOL;ZINC OXIDE [Concomitant]
     Dosage: UNK
  12. METOCLOPRAMIDE HYDROCHLORIDE [Concomitant]
     Active Substance: METOCLOPRAMIDE HYDROCHLORIDE
     Dosage: UNK
  13. HEPARIN LOCK FLUSH [Concomitant]
     Active Substance: HEPARIN SODIUM
     Dosage: UNK
  14. FAMOTIDINE [Concomitant]
     Active Substance: FAMOTIDINE
     Dosage: UNK
  15. REGLAN [Concomitant]
     Active Substance: METOCLOPRAMIDE HYDROCHLORIDE
     Dosage: 10 MILLIGRAM
     Route: 065
  16. SMOFLIPID [Concomitant]
     Active Substance: FISH OIL\MEDIUM-CHAIN TRIGLYCERIDES\OLIVE OIL\SOYBEAN OIL
     Dosage: 20 PERCENT
     Route: 065
  17. TPN [Concomitant]
     Active Substance: AMINO ACIDS\DEXTROSE\ELECTROLYTES NOS\SOYBEAN OIL
     Dosage: UNK
  18. MOXATAG [Concomitant]
     Active Substance: AMOXICILLIN
     Indication: Product used for unknown indication
     Dosage: 775 MILLIGRAM, QD
     Route: 065
  19. IRON [Concomitant]
     Active Substance: IRON
     Dosage: UNK

REACTIONS (9)
  - Pharyngitis streptococcal [Unknown]
  - Vascular device infection [Recovering/Resolving]
  - Parainfluenzae virus infection [Recovering/Resolving]
  - Rhinovirus infection [Recovering/Resolving]
  - Faecal vomiting [Unknown]
  - Ear infection [Unknown]
  - COVID-19 [Unknown]
  - Weight decreased [Unknown]
  - Streptococcal infection [Recovering/Resolving]

NARRATIVE: CASE EVENT DATE: 20230315
